FAERS Safety Report 12188772 (Version 1)
Quarter: 2016Q1

REPORT INFORMATION
  Report Type: Spontaneous
  Country: DE (occurrence: DE)
  Receive Date: 20160317
  Receipt Date: 20160317
  Transmission Date: 20160526
  Serious: Yes (Death, Hospitalization)
  Sender: FDA-Public Use
  Company Number: DE-JNJFOC-20160315394

PATIENT
  Age: 81 Year
  Sex: Male
  Weight: 80 kg

DRUGS (6)
  1. HCT [Concomitant]
     Active Substance: HYDROCHLOROTHIAZIDE
     Route: 065
  2. FUROSEMIDE. [Concomitant]
     Active Substance: FUROSEMIDE
     Route: 065
  3. XARELTO [Suspect]
     Active Substance: RIVAROXABAN
     Indication: CEREBROVASCULAR ACCIDENT PROPHYLAXIS
     Route: 048
     Dates: start: 20151222
  4. BISOPROLOL [Concomitant]
     Active Substance: BISOPROLOL
     Route: 065
  5. XARELTO [Suspect]
     Active Substance: RIVAROXABAN
     Indication: ATRIAL FIBRILLATION
     Route: 048
     Dates: start: 20151222
  6. IRBESARTAN. [Concomitant]
     Active Substance: IRBESARTAN
     Route: 065

REACTIONS (3)
  - Cerebral haemorrhage [Fatal]
  - Endocarditis [Unknown]
  - Infection [Unknown]

NARRATIVE: CASE EVENT DATE: 201601
